FAERS Safety Report 25751533 (Version 1)
Quarter: 2025Q3

REPORT INFORMATION
  Report Type: Spontaneous
  Country: CN (occurrence: CN)
  Receive Date: 20250902
  Receipt Date: 20250902
  Transmission Date: 20251021
  Serious: Yes (Life-Threatening, Hospitalization, Other)
  Sender: BAYER HEALTHCARE PHARMACEUTICALS INC.
  Company Number: CN-BAYER-2025A114561

PATIENT
  Age: 75 Year
  Sex: Male
  Weight: 70 kg

DRUGS (1)
  1. AVELOX [Suspect]
     Active Substance: MOXIFLOXACIN HYDROCHLORIDE
     Indication: Cough
     Dosage: 0.4 G, QD
     Route: 048
     Dates: start: 20250114, end: 20250114

REACTIONS (18)
  - Dermatitis allergic [Recovering/Resolving]
  - Anaphylactic shock [Recovering/Resolving]
  - Blood pressure decreased [None]
  - Syncope [Recovered/Resolved]
  - Loss of consciousness [None]
  - Unresponsive to stimuli [None]
  - Staring [None]
  - Rash erythematous [Recovering/Resolving]
  - Electrocardiogram ST segment elevation [None]
  - Circumoral swelling [Recovering/Resolving]
  - Hypoaesthesia oral [Recovering/Resolving]
  - Erythema [Recovering/Resolving]
  - Peripheral swelling [Recovering/Resolving]
  - Dizziness [None]
  - Radial pulse decreased [None]
  - Amnesia [None]
  - Heart rate decreased [None]
  - Product use in unapproved indication [None]

NARRATIVE: CASE EVENT DATE: 20250114
